FAERS Safety Report 6307245-4 (Version None)
Quarter: 2009Q3

REPORT INFORMATION
  Report Type: 
  Country: None (occurrence: None)
  Receive Date: 20090811
  Receipt Date: 20090327
  Transmission Date: 20100115
  Serious: Yes (Other)
  Sender: FDA-Public Use
  Company Number: USEN-7QJKSU

PATIENT
  Sex: Female

DRUGS (1)
  1. AVAGARD [Suspect]
     Indication: ANTIBIOTIC THERAPY
     Dosage: 6 ML, 3 TIMES ON ONE DAY; 3 APPLICATTIONS
     Dates: start: 20090326

REACTIONS (5)
  - BLISTER [None]
  - ERYTHEMA [None]
  - EYE SWELLING [None]
  - PRURITUS [None]
  - WHEEZING [None]
